FAERS Safety Report 10078918 (Version 1)
Quarter: 2014Q2

REPORT INFORMATION
  Report Type: Report from Study
  Country: DE (occurrence: DE)
  Receive Date: 20140415
  Receipt Date: 20140415
  Transmission Date: 20141212
  Serious: Yes (Other)
  Sender: FDA-Public Use
  Company Number: DE-SA-2014SA043243

PATIENT
  Age: 65 Year
  Sex: Male
  Weight: 92 kg

DRUGS (10)
  1. MULTAQ [Suspect]
     Indication: ATRIAL FIBRILLATION
     Route: 048
     Dates: start: 20120606
  2. VIT K ANTAGONISTS [Concomitant]
     Indication: THROMBOSIS PROPHYLAXIS
     Dates: start: 20130305
  3. BETA BLOCKING AGENTS [Concomitant]
     Dates: start: 201112, end: 201303
  4. ACETYLSALICYLIC ACID [Concomitant]
  5. LISINOPRIL [Concomitant]
  6. BISOPROLOL [Concomitant]
  7. NITRENDIPINE [Concomitant]
     Dosage: DOSE:20 UNIT(S)
  8. SIMVASTATIN [Concomitant]
  9. HYDROCHLOROTHIAZIDE [Concomitant]
  10. ALLOPURINOL [Concomitant]

REACTIONS (1)
  - Atrial fibrillation [Unknown]
